FAERS Safety Report 9540620 (Version 4)
Quarter: 2014Q2

REPORT INFORMATION
  Report Type: Spontaneous
  Country: US (occurrence: US)
  Receive Date: 20130920
  Receipt Date: 20140417
  Transmission Date: 20141212
  Serious: Yes (Death)
  Sender: FDA-Public Use
  Company Number: US-B.I. PHARMACEUTICALS,INC./RIDGEFIELD-2013-BI-29464BP

PATIENT
  Sex: Female
  Weight: 104.33 kg

DRUGS (18)
  1. PRADAXA [Suspect]
     Indication: ATRIAL FIBRILLATION
     Dosage: 300 MG
     Route: 065
     Dates: start: 20120512, end: 20120616
  2. AMIODARONE [Concomitant]
     Dosage: 400 MG
     Route: 048
     Dates: start: 2005, end: 2012
  3. HUMALOG [Concomitant]
     Route: 058
     Dates: start: 2005, end: 2012
  4. LANTUS [Concomitant]
     Dosage: 5 U
     Route: 058
     Dates: start: 2005, end: 2012
  5. FLUCONAZOLE [Concomitant]
     Dosage: 400 MG
     Route: 048
     Dates: start: 2005, end: 2012
  6. OXYBUTYNIN [Concomitant]
     Dosage: 10 MG
     Route: 048
     Dates: start: 2005, end: 2012
  7. GABAPENTIN [Concomitant]
     Dosage: 600 MG
     Route: 048
     Dates: start: 2005, end: 2012
  8. SIMVASTATIN [Concomitant]
     Route: 065
  9. LYRICA [Concomitant]
     Route: 065
  10. METOPROLOL [Concomitant]
     Route: 065
  11. ASPIRIN [Concomitant]
     Dosage: 81 MG
     Route: 048
  12. BUDESONIDE-FORMOTEROL [Concomitant]
     Dosage: 2 PUF
     Route: 065
  13. EPOETIN ALFA [Concomitant]
     Route: 058
  14. FERROUS SULFATE [Concomitant]
     Dosage: 600 MG
     Route: 048
  15. HYDROCORTISONE-NYSTATIN-ZINC [Concomitant]
     Route: 061
  16. PANTOPRAZOLE [Concomitant]
     Dosage: 40 MG
     Route: 048
  17. POTASSIUM CHLORIDE [Concomitant]
     Route: 042
  18. TRYPSIN-CASTOR OIL-PERU BALSAM [Concomitant]
     Route: 061

REACTIONS (5)
  - Wound haemorrhage [Fatal]
  - Haematuria [Fatal]
  - Haematochezia [Unknown]
  - Haemorrhage [Unknown]
  - Increased tendency to bruise [Unknown]
